FAERS Safety Report 5922071-3 (Version None)
Quarter: 2008Q4

REPORT INFORMATION
  Report Type: 
  Country: None (occurrence: None)
  Receive Date: 20081017
  Receipt Date: 20081007
  Transmission Date: 20090506
  Serious: Yes (Hospitalization)
  Sender: FDA-Public Use
  Company Number: B0540540A

PATIENT
  Age: 83 Year
  Sex: Male

DRUGS (2)
  1. AUGMENTIN '125' [Suspect]
     Dosage: 1G THREE TIMES PER DAY
     Route: 048
     Dates: start: 20080605, end: 20080614
  2. MOVICOL [Suspect]
     Indication: DRUG USE FOR UNKNOWN INDICATION
     Route: 048
     Dates: start: 20080611, end: 20080614

REACTIONS (3)
  - RASH MORBILLIFORM [None]
  - ROSEOLA [None]
  - TOXIC SKIN ERUPTION [None]
